FAERS Safety Report 8069211-0 (Version None)
Quarter: 2012Q1

REPORT INFORMATION
  Report Type: 
  Country: None (occurrence: None)
  Receive Date: 20120125
  Receipt Date: 20120117
  Transmission Date: 20120608
  Serious: Yes (Other)
  Sender: FDA-Public Use
  Company Number: US-BRISTOL-MYERS SQUIBB COMPANY-15957517

PATIENT
  Age: 81 Year
  Sex: Male

DRUGS (2)
  1. EYE DROPS [Concomitant]
  2. COUMADIN [Suspect]

REACTIONS (3)
  - PYREXIA [None]
  - DEMENTIA [None]
  - OEDEMA PERIPHERAL [None]
